FAERS Safety Report 5531301-1 (Version None)
Quarter: 2007Q4

REPORT INFORMATION
  Report Type: 
  Country: None (occurrence: None)
  Receive Date: 20071128
  Receipt Date: 20071113
  Transmission Date: 20080405
  Serious: Yes (Other)
  Sender: FDA-Public Use
  Company Number: 2007002304

PATIENT
  Age: 75 Year
  Sex: Female

DRUGS (7)
  1. MACUGEN [Suspect]
     Indication: MACULAR DEGENERATION
     Dosage: (0.3 MG,Q6W),INTRA-VITREAL
     Dates: start: 20061023
  2. RAMIPRIL [Concomitant]
  3. SIMVASTATIN [Concomitant]
  4. ASPIRIN [Concomitant]
  5. LANSOPRAZOLE [Concomitant]
  6. DICLOFENAC(DICLOFENAC) [Concomitant]
  7. AMLODIPINE [Concomitant]

REACTIONS (1)
  - SUBRETINAL FIBROSIS [None]
